FAERS Safety Report 13277922 (Version 1)
Quarter: 2017Q1

REPORT INFORMATION
  Report Type: Spontaneous
  Country: GB (occurrence: GB)
  Receive Date: 20170228
  Receipt Date: 20170228
  Transmission Date: 20170428
  Serious: Yes (Life-Threatening, Hospitalization)
  Sender: FDA-Public Use
  Company Number: GB-G+W LABS-GW2017GB000087

PATIENT

DRUGS (1)
  1. MESALAMINE. [Suspect]
     Active Substance: MESALAMINE
     Indication: CROHN^S DISEASE
     Dosage: UNK
     Route: 065

REACTIONS (3)
  - Pharyngeal abscess [Recovered/Resolved]
  - Osteomyelitis [Recovered/Resolved]
  - Pseudomonas infection [Recovered/Resolved]
